FAERS Safety Report 6995962 (Version 5)
Quarter: 2018Q4

REPORT INFORMATION
  Report Type: Spontaneous
  Country: JP (occurrence: JP)
  Receive Date: 20090515
  Receipt Date: 20181030
  Transmission Date: 20190205
  Serious: Yes (Death, Hospitalization)
  Sender: FDA-Public Use
  Company Number: PHHY2009JP03913

PATIENT
  Age: 78 Year
  Sex: Male
  Weight: 47 kg

DRUGS (4)
  1. BERIZYM [Concomitant]
     Active Substance: CELLULASE\DIASTASE\LIPASE
     Indication: DECREASED APPETITE
     Dosage: 1 G, TID
     Route: 048
     Dates: start: 20071206, end: 20081202
  2. GLIVEC [Suspect]
     Active Substance: IMATINIB MESYLATE
     Indication: HYPOKALAEMIA
     Dosage: 400 MG, QD
     Route: 048
  3. LASIX [Concomitant]
     Active Substance: FUROSEMIDE
     Indication: PLEURAL EFFUSION
     Dosage: 20 MG, QD
     Route: 048
     Dates: start: 20080806, end: 20081202
  4. GLIVEC [Suspect]
     Active Substance: IMATINIB MESYLATE
     Indication: GASTROINTESTINAL STROMAL TUMOUR
     Dosage: 400 MG, QD
     Route: 048
     Dates: start: 20071119, end: 20081202

REACTIONS (7)
  - Blood sodium decreased [Unknown]
  - Blood lactate dehydrogenase increased [Unknown]
  - Pneumonia [Fatal]
  - Oedema peripheral [Recovering/Resolving]
  - Hypokalaemia [Recovered/Resolved]
  - Pleural effusion [Recovering/Resolving]
  - Anaemia [Not Recovered/Not Resolved]

NARRATIVE: CASE EVENT DATE: 20071126
